FAERS Safety Report 5988645-9 (Version None)
Quarter: 2008Q4

REPORT INFORMATION
  Report Type: 
  Country: None (occurrence: None)
  Receive Date: 20081208
  Receipt Date: 20081208
  Transmission Date: 20090506
  Serious: Yes (Other)
  Sender: FDA-Public Use
  Company Number: None

PATIENT
  Age: 47 Year
  Sex: Female
  Weight: 81.6475 kg

DRUGS (10)
  1. SERTRALINE [Suspect]
     Indication: FIBROMYALGIA
     Dosage: TAKING 2 TABLETS DAILY ORALLY
     Route: 048
     Dates: start: 20000101
  2. SYNTHROID [Concomitant]
  3. SIMVASTATIN [Concomitant]
  4. PREVACID [Concomitant]
  5. DIOVAN HCT [Concomitant]
  6. CYCLOBENZAPRINE HCL [Concomitant]
  7. FAMCYCLOVIR [Concomitant]
  8. SERTRALINE [Concomitant]
  9. NAPROXEN [Concomitant]
  10. HYDROCODONE BIT/APAP [Concomitant]

REACTIONS (3)
  - DYSPEPSIA [None]
  - FOAMING AT MOUTH [None]
  - VOMITING [None]
